FAERS Safety Report 23893677 (Version 1)
Quarter: 2024Q2

REPORT INFORMATION
  Report Type: Report from Study
  Country: AU (occurrence: AU)
  Receive Date: 20240524
  Receipt Date: 20240524
  Transmission Date: 20240716
  Serious: Yes (Other)
  Sender: FDA-Public Use
  Company Number: AU-BEH-2024172522

PATIENT
  Age: 56 Year
  Sex: Female
  Weight: 86 kg

DRUGS (1)
  1. HIZENTRA [Suspect]
     Active Substance: HUMAN IMMUNOGLOBULIN G
     Indication: Primary immunodeficiency syndrome
     Dosage: 9 G, QW
     Route: 058

REACTIONS (3)
  - Terminal state [Not Recovered/Not Resolved]
  - Malaise [Not Recovered/Not Resolved]
  - Therapy interrupted [Unknown]
